FAERS Safety Report 5405313-2 (Version None)
Quarter: 2007Q3

REPORT INFORMATION
  Report Type: 
  Country: None (occurrence: None)
  Receive Date: 20070803
  Receipt Date: 20070725
  Transmission Date: 20080115
  Serious: Yes (Hospitalization)
  Sender: FDA-Public Use
  Company Number: B0481668A

PATIENT
  Age: 45 Year
  Sex: Female
  Weight: 53 kg

DRUGS (8)
  1. AUGMENTIN '125' [Suspect]
     Route: 048
  2. ROVAMYCINE [Suspect]
     Route: 048
  3. EFFEXOR [Concomitant]
     Route: 048
  4. AOTAL [Concomitant]
     Dosage: 1TAB TWICE PER DAY
     Route: 048
     Dates: end: 20070605
  5. REVIA [Concomitant]
     Dosage: 1TAB PER DAY
     Route: 048
     Dates: end: 20070605
  6. LEXOMIL [Concomitant]
     Route: 065
  7. VALIUM [Concomitant]
     Route: 065
  8. LOVENOX [Concomitant]
     Dosage: .4U PER DAY
     Route: 065

REACTIONS (8)
  - BLOOD TRIGLYCERIDES INCREASED [None]
  - INTERSTITIAL LUNG DISEASE [None]
  - KLEBSIELLA INFECTION [None]
  - LIPASE INCREASED [None]
  - LUNG DISORDER [None]
  - PANCREATITIS [None]
  - SERUM FERRITIN INCREASED [None]
  - THROMBOCYTHAEMIA [None]
